FAERS Safety Report 18857159 (Version 1)
Quarter: 2021Q1

REPORT INFORMATION
  Report Type: Spontaneous
  Country: US (occurrence: US)
  Receive Date: 20210208
  Receipt Date: 20210208
  Transmission Date: 20210420
  Serious: No
  Sender: FDA-Public Use
  Company Number: US-TEVA-2021-US-1869304

PATIENT
  Age: 65 Year
  Sex: Male

DRUGS (9)
  1. AUSTEDO [Suspect]
     Active Substance: DEUTETRABENAZINE
     Indication: TARDIVE DYSKINESIA
     Route: 048
     Dates: start: 20201217
  2. LAMOTRIGINE 200MG [Concomitant]
     Active Substance: LAMOTRIGINE
     Route: 048
  3. OMEPRAZOLE 20MG [Concomitant]
     Active Substance: OMEPRAZOLE
     Dosage: CAPSULE DELAYED RELEASE
     Route: 048
  4. LISINOPRIL. [Concomitant]
     Active Substance: LISINOPRIL
     Route: 048
  5. HYDROCORTISONE VALERATE EXTERNAL CREAM 0.2% [Concomitant]
  6. AUSTEDO [Suspect]
     Active Substance: DEUTETRABENAZINE
     Dosage: 24 MILLIGRAM DAILY;
     Route: 048
     Dates: end: 20210104
  7. KLOR?CON M20 [Concomitant]
     Active Substance: POTASSIUM CHLORIDE
     Dosage: TABLET EXTENDED RELEASE 20MEQ
     Route: 048
  8. RISPERIDONE 1MG [Concomitant]
     Active Substance: RISPERIDONE
     Route: 048
  9. AMLODIPINE BESYLATE 10MG [Concomitant]
     Active Substance: AMLODIPINE BESYLATE
     Route: 048

REACTIONS (1)
  - Depression [Unknown]
